FAERS Safety Report 17843634 (Version 7)
Quarter: 2020Q4

REPORT INFORMATION
  Report Type: Report from Study
  Country: CA (occurrence: CA)
  Receive Date: 20200531
  Receipt Date: 20201224
  Transmission Date: 20210113
  Serious: Yes (Other)
  Sender: FDA-Public Use
  Company Number: PHHY2012CA069244

PATIENT
  Age: 56 Year
  Sex: Male

DRUGS (10)
  1. AMLODIPINE [Suspect]
     Active Substance: AMLODIPINE BESYLATE
     Indication: PRODUCT USED FOR UNKNOWN INDICATION
     Dosage: 5 MG, QD (1 PILL DAILY)
     Route: 065
  2. SANDOSTATIN LAR DEPOT [Suspect]
     Active Substance: OCTREOTIDE ACETATE
     Dosage: 20 MG, QMO (EVERY 4 WEEKS)
     Route: 030
     Dates: start: 20120614, end: 20121228
  3. ELIGARD [Concomitant]
     Active Substance: LEUPROLIDE ACETATE
     Indication: PRODUCT USED FOR UNKNOWN INDICATION
     Dosage: 22.5 MG, Q3MO
     Route: 065
     Dates: start: 2017
  4. JAMP VITAMIN D [Concomitant]
     Active Substance: CHOLECALCIFEROL
     Indication: PRODUCT USED FOR UNKNOWN INDICATION
     Dosage: 10000 IU, QW
     Route: 065
  5. DOSTINEX [Concomitant]
     Active Substance: CABERGOLINE
     Indication: PRODUCT USED FOR UNKNOWN INDICATION
     Dosage: 0.5 MG (1 DF TWICE/WEEK)
     Route: 065
  6. RAMIPRIL + HIDROCLOROTIAZIDA [Concomitant]
     Active Substance: HYDROCHLOROTHIAZIDE\RAMIPRIL
     Dosage: 25 MG, QD
     Route: 065
  7. SANDOSTATIN LAR DEPOT [Suspect]
     Active Substance: OCTREOTIDE ACETATE
     Indication: CARCINOID TUMOUR
     Dosage: 20 MG, Q4W
     Route: 030
     Dates: start: 20120517
  8. SANDOSTATIN LAR DEPOT [Suspect]
     Active Substance: OCTREOTIDE ACETATE
     Indication: ACROMEGALY
     Dosage: 10 MG
     Route: 030
     Dates: start: 20120517, end: 20120517
  9. SANDOSTATIN LAR DEPOT [Suspect]
     Active Substance: OCTREOTIDE ACETATE
     Dosage: 30 MG, QMO (EVERY 4 WEEKS)
     Route: 030
     Dates: start: 20130121
  10. RAMIPRIL + HIDROCLOROTIAZIDA [Concomitant]
     Active Substance: HYDROCHLOROTHIAZIDE\RAMIPRIL
     Indication: HYPERTENSION
     Dosage: 10/25 MG, QD IN MORNING
     Route: 065

REACTIONS (21)
  - Arthropod bite [Unknown]
  - Heart rate increased [Unknown]
  - Pruritus [Not Recovered/Not Resolved]
  - Arthralgia [Unknown]
  - Musculoskeletal stiffness [Unknown]
  - Carcinoid tumour [Unknown]
  - Prostatic specific antigen increased [Unknown]
  - Productive cough [Recovering/Resolving]
  - Oncologic complication [Unknown]
  - Headache [Recovered/Resolved]
  - Injection site pain [Recovered/Resolved]
  - Malignant neoplasm progression [Unknown]
  - Cyst [Unknown]
  - Therapeutic response decreased [Unknown]
  - Erythema [Unknown]
  - Oedema peripheral [Unknown]
  - Injection site pain [Unknown]
  - Acne [Not Recovered/Not Resolved]
  - Movement disorder [Unknown]
  - Pain in extremity [Unknown]
  - Blood pressure increased [Unknown]

NARRATIVE: CASE EVENT DATE: 20150603
